FAERS Safety Report 9753000 (Version 1)
Quarter: 2013Q4

REPORT INFORMATION
  Report Type: Spontaneous
  Country: ZA (occurrence: ZA)
  Receive Date: 20131213
  Receipt Date: 20131213
  Transmission Date: 20140711
  Serious: Yes (Hospitalization)
  Sender: FDA-Public Use
  Company Number: ZA-B.I. PHARMACEUTICALS,INC./RIDGEFIELD-2013-BI-41255ZA

PATIENT
  Age: 77 Year
  Sex: Male

DRUGS (6)
  1. PRADAXA [Suspect]
     Indication: ATRIAL FIBRILLATION
     Dosage: 220 MG
     Dates: start: 201304
  2. CARLOC [Concomitant]
     Dosage: 6.25 MG
  3. CORDARONE [Concomitant]
     Dosage: 100 MG
  4. CHLORAMEX [Concomitant]
     Dosage: 3.5 MG
  5. CRESTOR [Concomitant]
     Dosage: 5 MG
  6. VASOMIL [Concomitant]
     Dosage: 40 MG

REACTIONS (1)
  - Pleural effusion [Recovered/Resolved]
